FAERS Safety Report 9206881 (Version 1)
Quarter: 2013Q1

REPORT INFORMATION
  Report Type: Spontaneous
  Country: US (occurrence: None)
  Receive Date: 20120713
  Receipt Date: 20120713
  Transmission Date: 20140127
  Serious: Yes (Hospitalization)
  Sender: FDA-Public Use
  Company Number: PHEH2012US009961

PATIENT
  Age: 70 Year
  Sex: Male

DRUGS (21)
  1. VALTURNA [Suspect]
     Indication: BLOOD PRESSURE
     Dosage: (300 MG ALISKIREN AND 320 MG VALSARTAN)
     Route: 048
  2. ASPIRIN (ACETYLSALICYLIC ACID) [Concomitant]
  3. AMLODIPINE BESILATE (AMLODIPINE BESILATE) [Concomitant]
  4. BYSTOLIC (NEBIVOLOL HYDROCHLORIDE) [Concomitant]
  5. SPIRONOLACTONE (SPIRONOLACTONE) [Concomitant]
  6. BUMEX (BUMETANIDE) [Concomitant]
  7. MINOXIDIL (MINOXIDIL) [Concomitant]
  8. AVAPRO (IRBESARTAN) [Concomitant]
  9. AVODART (DUTASTERIDE) [Concomitant]
  10. VITAMIN D (ERGOCALCIFEROL) [Concomitant]
  11. PLAVIX (CLOPIDOGREL SULFATE) [Concomitant]
  12. HYDROCODONE (HYDROCODONE) [Concomitant]
  13. ULORIC (FEBUXOSTAT) [Concomitant]
  14. NITRO-SPRAY (ISOSORBIDE DINITRATE) [Concomitant]
  15. LANTUS (INSULIN GLARGINE) [Concomitant]
  16. TRAVATAN (TRAVOPROST) [Concomitant]
  17. COSOPT (DORZOLAMIDE HYDROCHLORIDE, TIMOLOL, MALEATE) [Concomitant]
  18. ALPHAGAN (BRIMONIDINE TARTRATE) [Concomitant]
  19. ALLEGRA [Concomitant]
  20. KRILL OIL [Concomitant]
  21. NASONEX (MOMETASONE FUROATE) SPRAY [Concomitant]

REACTIONS (1)
  - Renal failure [None]
